FAERS Safety Report 25345697 (Version 4)
Quarter: 2025Q3

REPORT INFORMATION
  Report Type: Report from Study
  Country: US (occurrence: US)
  Receive Date: 20250522
  Receipt Date: 20250926
  Transmission Date: 20251021
  Serious: Yes (Other)
  Sender: TAKEDA
  Company Number: US-TAKEDA-2024TUS130905

PATIENT
  Sex: Female
  Weight: 55.329 kg

DRUGS (5)
  1. TEDUGLUTIDE [Suspect]
     Active Substance: TEDUGLUTIDE
     Indication: Short-bowel syndrome
     Dosage: UNK, QD
     Dates: start: 20241028
  2. TEDUGLUTIDE [Suspect]
     Active Substance: TEDUGLUTIDE
     Dosage: 0.3 MILLILITER, QD
     Dates: start: 20241219
  3. TEDUGLUTIDE [Suspect]
     Active Substance: TEDUGLUTIDE
     Dosage: 0.3 MILLILITER, QD
     Dates: start: 202412
  4. TEDUGLUTIDE [Suspect]
     Active Substance: TEDUGLUTIDE
  5. FERRLECIT [Suspect]
     Active Substance: SODIUM FERRIC GLUCONATE COMPLEX
     Indication: Product used for unknown indication

REACTIONS (23)
  - Aortic valve incompetence [Unknown]
  - Syncope [Unknown]
  - Onychoclasis [Unknown]
  - Arthritis [Unknown]
  - Fatigue [Recovered/Resolved]
  - Presyncope [Unknown]
  - Dizziness [Recovered/Resolved]
  - Skin burning sensation [Recovered/Resolved]
  - Injection site bruising [Unknown]
  - Insurance issue [Unknown]
  - Product distribution issue [Unknown]
  - Product use issue [Unknown]
  - Somnolence [Unknown]
  - Blood sodium abnormal [Unknown]
  - Nail bed bleeding [Unknown]
  - Dry skin [Unknown]
  - Skin fissures [Unknown]
  - Blood iron decreased [Unknown]
  - Hyperhidrosis [Recovered/Resolved]
  - Vomiting [Recovered/Resolved]
  - Nausea [Recovered/Resolved]
  - Decreased appetite [Unknown]
  - Abdominal distension [Unknown]

NARRATIVE: CASE EVENT DATE: 20241219
